FAERS Safety Report 7293374-8 (Version None)
Quarter: 2011Q1

REPORT INFORMATION
  Report Type: 
  Country: None (occurrence: None)
  Receive Date: 20110215
  Receipt Date: 20110208
  Transmission Date: 20110831
  Serious: Yes (Other)
  Sender: FDA-Public Use
  Company Number: GB-PFIZER INC-2011028775

PATIENT
  Age: 51 Year
  Sex: Female
  Weight: 43.2 kg

DRUGS (10)
  1. ELLESTE-DUET [Concomitant]
     Dosage: UNK
  2. LANSOPRAZOLE [Concomitant]
     Dosage: UNK
  3. OXYTETRACYCLINE [Concomitant]
     Dosage: UNK
  4. VORICONAZOLE [Suspect]
     Indication: FUNGAL INFECTION
     Dosage: 100 MG, 2X/DAY
     Route: 048
     Dates: start: 20020101, end: 20101001
  5. URSODEOXYCHOLIC ACID [Concomitant]
     Dosage: UNK
  6. CLARITHROMYCIN [Concomitant]
     Dosage: UNK
  7. LEVOTHYROXINE SODIUM [Concomitant]
     Dosage: UNK
  8. BENDROFLUAZIDE [Concomitant]
     Dosage: UNK
  9. MYCOPHENOLATE MOFETIL [Suspect]
     Indication: GRAFT VERSUS HOST DISEASE
     Dosage: 1 G, 2X/DAY
     Route: 048
     Dates: start: 20040101
  10. COTRIM [Concomitant]
     Dosage: UNK

REACTIONS (3)
  - DYSPLASIA [None]
  - SKIN CANCER [None]
  - ACTINIC KERATOSIS [None]
